FAERS Safety Report 4542406-6 (Version None)
Quarter: 2004Q4

REPORT INFORMATION
  Report Type: 
  Country: None (occurrence: None)
  Receive Date: 20041227
  Receipt Date: 20041213
  Transmission Date: 20050328
  Serious: Yes (Death, Hospitalization, Other)
  Sender: FDA-Public Use
  Company Number: 2004233169US

PATIENT
  Age: 45 Year
  Sex: Male

DRUGS (8)
  1. CLINDAMYCIN HYDROCHLORIDE CAPSULE (CLINDAMYCIN HYDROCHLORIDE) [Suspect]
     Indication: CHRONIC SINUSITIS
  2. GATIFLOXACIN [Suspect]
     Indication: CHRONIC SINUSITIS
  3. MOXIFLOXACIN HCL [Suspect]
     Indication: CHRONIC SINUSITIS
     Dosage: ORAL
     Route: 048
  4. CLAVULIN (AMOXICILLIN TRIHYDRATE, CLAVULANATE POTASSIUM) [Concomitant]
     Indication: CHRONIC SINUSITIS
  5. FEXOFENADINE HYDROCHLORIDE [Concomitant]
  6. FLUTICASONE PROPIONATE [Concomitant]
  7. MOMETASONE FUROATE [Concomitant]
  8. PREDNISONE [Concomitant]

REACTIONS (38)
  - ASCITES [None]
  - BILE DUCT OBSTRUCTION [None]
  - BLOOD BICARBONATE DECREASED [None]
  - BLOOD CHLORIDE DECREASED [None]
  - BLOOD POTASSIUM INCREASED [None]
  - BLOOD PRESSURE DIASTOLIC DECREASED [None]
  - BLOOD SODIUM DECREASED [None]
  - CARDIAC ARREST [None]
  - CHEST PAIN [None]
  - CHOLESTASIS [None]
  - CHRONIC HEPATITIS [None]
  - CONDITION AGGRAVATED [None]
  - DIALYSIS [None]
  - DISSEMINATED INTRAVASCULAR COAGULATION [None]
  - DRUG INEFFECTIVE [None]
  - DYSPNOEA [None]
  - ELECTROCARDIOGRAM ST SEGMENT ABNORMAL [None]
  - FAECAL OCCULT BLOOD POSITIVE [None]
  - HEART RATE INCREASED [None]
  - HEPATIC ENZYME INCREASED [None]
  - HEPATIC FAILURE [None]
  - HEPATIC STEATOSIS [None]
  - HYPOAESTHESIA [None]
  - IDIOSYNCRATIC DRUG REACTION [None]
  - JAUNDICE [None]
  - LABORATORY TEST ABNORMAL [None]
  - LIVER DISORDER [None]
  - LUNG INFILTRATION [None]
  - MULTI-ORGAN FAILURE [None]
  - MUSCLE ATROPHY [None]
  - PANCREATIC INSUFFICIENCY [None]
  - PANCYTOPENIA [None]
  - PARAESTHESIA [None]
  - PULMONARY OEDEMA [None]
  - PYREXIA [None]
  - RENAL FAILURE [None]
  - TACHYARRHYTHMIA [None]
  - TROPONIN INCREASED [None]
